FAERS Safety Report 18462358 (Version 1)
Quarter: 2020Q4

REPORT INFORMATION
  Report Type: Spontaneous
  Country: US (occurrence: US)
  Receive Date: 20201103
  Receipt Date: 20201103
  Transmission Date: 20210114
  Serious: No
  Sender: FDA-Public Use
  Company Number: None

PATIENT
  Age: 45 Year
  Sex: Male
  Weight: 99 kg

DRUGS (2)
  1. QUETIAPINE FUMARATE EXTENDED RELEASE [Suspect]
     Active Substance: QUETIAPINE FUMARATE
     Indication: SLEEP DISORDER
     Dosage: ?          QUANTITY:3 TABLET(S);?
     Route: 048
     Dates: start: 20180912, end: 20180915
  2. QUETIAPINE FUMARATE EXTENDED RELEASE [Suspect]
     Active Substance: QUETIAPINE FUMARATE
     Indication: BIPOLAR DISORDER
     Dosage: ?          QUANTITY:3 TABLET(S);?
     Route: 048
     Dates: start: 20180912, end: 20180915

REACTIONS (8)
  - Pain [None]
  - Hypoaesthesia [None]
  - Insomnia [None]
  - Pain in extremity [None]
  - Product physical issue [None]
  - Arthralgia [None]
  - Product quality issue [None]
  - Neuralgia [None]

NARRATIVE: CASE EVENT DATE: 20180912
